FAERS Safety Report 6254664-0 (Version None)
Quarter: 2009Q3

REPORT INFORMATION
  Report Type: 
  Country: None (occurrence: None)
  Receive Date: 20090702
  Receipt Date: 20090617
  Transmission Date: 20100115
  Serious: Yes (Other)
  Sender: FDA-Public Use
  Company Number: JP-GENENTECH-285754

PATIENT
  Age: 58 Year
  Sex: Male

DRUGS (4)
  1. AVASTIN [Suspect]
     Indication: COLON CANCER METASTATIC
     Dosage: UNK
     Route: 041
  2. OXALIPLATIN [Concomitant]
     Indication: COLON CANCER METASTATIC
  3. FLUOROURACIL [Concomitant]
     Indication: COLON CANCER METASTATIC
  4. LEUCOVORIN CALCIUM [Concomitant]
     Indication: COLON CANCER METASTATIC

REACTIONS (1)
  - PRINZMETAL ANGINA [None]
